FAERS Safety Report 17720792 (Version 2)
Quarter: 2020Q2

REPORT INFORMATION
  Report Type: Spontaneous
  Country: US (occurrence: US)
  Receive Date: 20200428
  Receipt Date: 20200619
  Transmission Date: 20200714
  Serious: No
  Sender: FDA-Public Use
  Company Number: NVSC2020US111479

PATIENT
  Sex: Female

DRUGS (1)
  1. ADAKVEO [Suspect]
     Active Substance: CRIZANLIZUMAB-TMCA
     Indication: PRODUCT USED FOR UNKNOWN INDICATION
     Route: 065

REACTIONS (8)
  - Influenza like illness [Unknown]
  - Pyrexia [Recovered/Resolved]
  - Myalgia [Unknown]
  - Back pain [Recovered/Resolved]
  - Arthralgia [Recovered/Resolved]
  - Diarrhoea [Unknown]
  - Bone pain [Unknown]
  - Nausea [Recovered/Resolved]
